FAERS Safety Report 10049591 (Version 1)
Quarter: 2014Q2

REPORT INFORMATION
  Report Type: Spontaneous
  Country: ZA (occurrence: ZA)
  Receive Date: 20140401
  Receipt Date: 20140401
  Transmission Date: 20141212
  Serious: Yes (Hospitalization)
  Sender: FDA-Public Use
  Company Number: PHHY2014ZA038593

PATIENT
  Sex: Female

DRUGS (1)
  1. FEMARA [Suspect]
     Dosage: 2.5 MG, PER DAY

REACTIONS (4)
  - Colitis [Unknown]
  - Dehydration [Unknown]
  - Atrial fibrillation [Unknown]
  - Diarrhoea [Unknown]
